FAERS Safety Report 5960162-1 (Version None)
Quarter: 2008Q4

REPORT INFORMATION
  Report Type: 
  Country: None (occurrence: None)
  Receive Date: 20081120
  Receipt Date: 20081110
  Transmission Date: 20090506
  Serious: Yes (Death)
  Sender: FDA-Public Use
  Company Number: US-ELI_LILLY_AND_COMPANY-US200809006427

PATIENT
  Age: 33 Year
  Sex: Male
  Weight: 60.317 kg

DRUGS (2)
  1. HUMATROPE [Suspect]
     Indication: GROWTH HORMONE DEFICIENCY
     Dosage: 0.4 MG, UNK
     Dates: start: 20080701
  2. INSULIN [Concomitant]
     Dosage: UNK, UNKNOWN

REACTIONS (7)
  - AGITATION [None]
  - DEPRESSED MOOD [None]
  - FATIGUE [None]
  - MENTAL IMPAIRMENT [None]
  - MYOCARDIAL INFARCTION [None]
  - NERVOUSNESS [None]
  - PERSONALITY CHANGE [None]
